FAERS Safety Report 7681791-3 (Version None)
Quarter: 2011Q3

REPORT INFORMATION
  Report Type: 
  Country: None (occurrence: None)
  Receive Date: 20110812
  Receipt Date: 20110803
  Transmission Date: 20111222
  Serious: Yes (Other)
  Sender: FDA-Public Use
  Company Number: CH-ASTRAZENECA-2011SE46975

PATIENT
  Age: 35 Year
  Sex: Female

DRUGS (4)
  1. DOXORUBICIN HCL [Suspect]
     Dosage: 76 MG 1 CYCLIC
     Route: 041
     Dates: start: 20110714, end: 20110714
  2. CYCLOPHOSPHAMIDE [Suspect]
     Dosage: 1133 MG 1 CYCLIC
     Route: 041
     Dates: start: 20110714, end: 20110714
  3. VINCRISTINE [Suspect]
     Dosage: 2 MG 1 CYCLIC
     Route: 041
     Dates: start: 20110714, end: 20110714
  4. NEXIUM [Suspect]
     Route: 048
     Dates: start: 20110615, end: 20110715

REACTIONS (2)
  - THROMBOCYTOPENIA [None]
  - HEPATOCELLULAR INJURY [None]
